FAERS Safety Report 4683435-1 (Version None)
Quarter: 2005Q2

REPORT INFORMATION
  Report Type: 
  Country: None (occurrence: None)
  Receive Date: 20050607
  Receipt Date: 20050526
  Transmission Date: 20051028
  Serious: Yes (Other)
  Sender: FDA-Public Use
  Company Number: US-JNJFOC-20050507201

PATIENT
  Sex: Female
  Weight: 51.71 kg

DRUGS (22)
  1. INFLIXIMAB [Suspect]
     Indication: RHEUMATOID ARTHRITIS
     Route: 042
  2. PREDNISONE [Concomitant]
  3. FOSAMAX [Concomitant]
  4. METHOTREXATE [Concomitant]
  5. COZAAR [Concomitant]
  6. SYNTHROID [Concomitant]
  7. FOLIC ACID [Concomitant]
  8. CALCIUM GLUCONATE [Concomitant]
  9. MULTI-VITAMIN [Concomitant]
  10. MULTI-VITAMIN [Concomitant]
  11. MULTI-VITAMIN [Concomitant]
  12. MULTI-VITAMIN [Concomitant]
  13. MULTI-VITAMIN [Concomitant]
  14. MULTI-VITAMIN [Concomitant]
  15. MULTI-VITAMIN [Concomitant]
  16. MULTI-VITAMIN [Concomitant]
  17. QUININE [Concomitant]
  18. COREG [Concomitant]
  19. PROTONIX [Concomitant]
  20. FUROSEMIDE [Concomitant]
  21. COUMADIN [Concomitant]
     Dosage: 2.5-5 MG DAILY
  22. ZOCOR [Concomitant]

REACTIONS (1)
  - SQUAMOUS CELL CARCINOMA [None]
